FAERS Safety Report 5269531-9 (Version None)
Quarter: 2007Q1

REPORT INFORMATION
  Report Type: 
  Country: None (occurrence: None)
  Receive Date: 20070320
  Receipt Date: 20070314
  Transmission Date: 20070707
  Serious: Yes (Life-Threatening, Hospitalization)
  Sender: FDA-Public Use
  Company Number: PHNU2007DE01191

PATIENT
  Sex: Male

DRUGS (1)
  1. BRISERIN MITE [Suspect]
     Dosage: 1 DF, QD
     Dates: start: 20070131, end: 20070202

REACTIONS (3)
  - CENTRAL PONTINE MYELINOLYSIS [None]
  - GENERAL PHYSICAL HEALTH DETERIORATION [None]
  - HYPONATRAEMIA [None]
